FAERS Safety Report 12978416 (Version 1)
Quarter: 2016Q4

REPORT INFORMATION
  Report Type: Spontaneous
  Country: US (occurrence: US)
  Receive Date: 20161127
  Receipt Date: 20161127
  Transmission Date: 20170207
  Serious: Yes (Other)
  Sender: FDA-Public Use
  Company Number: None

PATIENT
  Age: 59 Year
  Sex: Female
  Weight: 83.25 kg

DRUGS (25)
  1. CARISPODRODOL (SOMA) [Concomitant]
  2. TURMERIC [Concomitant]
     Active Substance: TURMERIC
  3. HYOSCYSAMINE SULF [Concomitant]
  4. ATENOLOL. [Concomitant]
     Active Substance: ATENOLOL
  5. VITAMIN C [Concomitant]
     Active Substance: ASCORBIC ACID
  6. ESTRACE [Concomitant]
     Active Substance: ESTRADIOL
  7. PROBIOTIC [Concomitant]
     Active Substance: PROBIOTICS NOS
  8. OXYCODONE [Concomitant]
     Active Substance: OXYCODONE
  9. TAURINE [Concomitant]
     Active Substance: TAURINE
  10. CORTISOL MANAGER [Concomitant]
  11. NATURE-THROID [Concomitant]
     Active Substance: THYROID, PORCINE
  12. DIFLUCAN [Concomitant]
     Active Substance: FLUCONAZOLE
  13. MAGNESIUM [Concomitant]
     Active Substance: MAGNESIUM
  14. FLAXSEED [Concomitant]
     Active Substance: FLAX SEED
  15. VITAMIN D3 [Concomitant]
     Active Substance: CHOLECALCIFEROL
  16. R-ALPHA LIPOIC ACID [Concomitant]
  17. RELAFEN [Concomitant]
     Active Substance: NABUMETONE
  18. ADRENAL SUPPORT [Concomitant]
     Active Substance: HOMEOPATHICS
  19. CHLORELLA [Concomitant]
  20. LEXISCAN [Suspect]
     Active Substance: REGADENOSON
     Indication: IMAGING PROCEDURE
     Dates: start: 20161114, end: 20161114
  21. OMEPRAZOLE. [Concomitant]
     Active Substance: OMEPRAZOLE
  22. VALIUM [Concomitant]
     Active Substance: DIAZEPAM
  23. CRANBERRY. [Concomitant]
     Active Substance: CRANBERRY
  24. GUAR GUM [Concomitant]
     Active Substance: GUAR GUM
  25. FISH OIL [Concomitant]
     Active Substance: FISH OIL

REACTIONS (4)
  - Contrast media allergy [None]
  - Chest pain [None]
  - Chest discomfort [None]
  - Back pain [None]

NARRATIVE: CASE EVENT DATE: 20161114
